FAERS Safety Report 20691471 (Version 1)
Quarter: 2022Q2

REPORT INFORMATION
  Report Type: Spontaneous
  Country: US (occurrence: None)
  Receive Date: 20220406
  Receipt Date: 20220406
  Transmission Date: 20220721
  Serious: Yes (Other)
  Sender: FDA-Public Use
  Company Number: None

PATIENT
  Age: 61 Year
  Sex: Female

DRUGS (25)
  1. OPSUMIT [Suspect]
     Active Substance: MACITENTAN
     Indication: Pulmonary hypertension
     Dosage: FREQUENCY : DAILY;?
     Route: 048
     Dates: start: 20190228, end: 20220406
  2. TADALAFIL [Concomitant]
     Active Substance: TADALAFIL
  3. HUMULIN 70/30 [Concomitant]
     Active Substance: INSULIN HUMAN
  4. LIPITOR [Concomitant]
     Active Substance: ATORVASTATIN CALCIUM
  5. CYMBALTA [Concomitant]
     Active Substance: DULOXETINE HYDROCHLORIDE
  6. FLEXERIL [Concomitant]
     Active Substance: CYCLOBENZAPRINE HYDROCHLORIDE
  7. DUONEB [Concomitant]
     Active Substance: ALBUTEROL SULFATE\IPRATROPIUM BROMIDE
  8. WARFARIN [Concomitant]
     Active Substance: WARFARIN
  9. NORCO [Concomitant]
     Active Substance: ACETAMINOPHEN\HYDROCODONE BITARTRATE
  10. LIDOCAINE PATCH [Concomitant]
     Active Substance: LIDOCAINE
  11. BUMEX [Concomitant]
     Active Substance: BUMETANIDE
  12. SPIRONOLACTONE [Concomitant]
     Active Substance: SPIRONOLACTONE
  13. STIOLTO RESPIMAT [Concomitant]
     Active Substance: OLODATEROL HYDROCHLORIDE\TIOTROPIUM BROMIDE MONOHYDRATE
  14. Alvesco HFA [Concomitant]
  15. LOSARTAN [Concomitant]
     Active Substance: LOSARTAN
  16. FOLIC ACID [Concomitant]
     Active Substance: FOLIC ACID
  17. ALBUTEROL SULFATE [Concomitant]
     Active Substance: ALBUTEROL SULFATE
  18. NICOTINE TRANSDERMAL SYSTEM [Concomitant]
     Active Substance: NICOTINE
  19. Voltaren gop gel [Concomitant]
  20. LACTULOSE [Concomitant]
     Active Substance: LACTULOSE
  21. ASPIRIN [Concomitant]
     Active Substance: ASPIRIN
  22. SENNA LAXATIVE [Concomitant]
     Active Substance: SENNOSIDES
  23. COLACE [Concomitant]
     Active Substance: DOCUSATE SODIUM
  24. MELATONIN [Concomitant]
     Active Substance: MELATONIN
  25. NARCAN [Concomitant]
     Active Substance: NALOXONE HYDROCHLORIDE

REACTIONS (2)
  - Therapy interrupted [None]
  - Anaemia [None]

NARRATIVE: CASE EVENT DATE: 20220404
